FAERS Safety Report 21188034 (Version 2)
Quarter: 2022Q3

REPORT INFORMATION
  Report Type: Spontaneous
  Country: US (occurrence: US)
  Receive Date: 20220809
  Receipt Date: 20220826
  Transmission Date: 20221026
  Serious: Yes (Other)
  Sender: FDA-Public Use
  Company Number: US-SUN PHARMACEUTICAL INDUSTRIES LTD-2022R1-347884

PATIENT
  Age: 30 Year
  Sex: Female

DRUGS (8)
  1. PYRIDOXINE [Suspect]
     Active Substance: PYRIDOXINE
     Indication: Narcolepsy
     Route: 065
  2. SERTRALINE [Suspect]
     Active Substance: SERTRALINE HYDROCHLORIDE
     Indication: Narcolepsy
     Dosage: 100 MILLIGRAM
     Route: 065
  3. DOXYLAMINE [Suspect]
     Active Substance: DOXYLAMINE
     Indication: Narcolepsy
     Dosage: 100 MILLIGRAM
     Route: 065
  4. METHYLPHENIDATE [Suspect]
     Active Substance: METHYLPHENIDATE
     Indication: Narcolepsy
     Dosage: 54 MILLIGRAM
     Route: 065
  5. METHYLPHENIDATE [Suspect]
     Active Substance: METHYLPHENIDATE
     Dosage: 36 MG EACH MORNING
     Route: 065
  6. RITALIN [Suspect]
     Active Substance: METHYLPHENIDATE HYDROCHLORIDE
     Indication: Narcolepsy
     Dosage: 20 MILLIGRAM
     Route: 065
  7. RITALIN [Suspect]
     Active Substance: METHYLPHENIDATE HYDROCHLORIDE
     Dosage: 5 MILLIGRAM, BID
     Route: 065
  8. URSODIOL [Suspect]
     Active Substance: URSODIOL
     Indication: Cholestasis of pregnancy
     Dosage: 300 MILLIGRAM, BID
     Route: 065

REACTIONS (4)
  - Exposure during pregnancy [Unknown]
  - Cholestasis of pregnancy [Unknown]
  - Gastrooesophageal reflux disease [Unknown]
  - Premature delivery [Unknown]
